FAERS Safety Report 7445343-2 (Version None)
Quarter: 2011Q2

REPORT INFORMATION
  Report Type: 
  Country: None (occurrence: None)
  Receive Date: 20110429
  Receipt Date: 20100315
  Transmission Date: 20111010
  Serious: No
  Sender: FDA-Public Use
  Company Number: A0851819A

PATIENT
  Sex: Male

DRUGS (2)
  1. ZOFRAN [Suspect]
     Dosage: 8MG UNKNOWN
     Route: 065
  2. CHEMOTHERAPY [Suspect]
     Route: 065

REACTIONS (1)
  - ADVERSE DRUG REACTION [None]
